FAERS Safety Report 25622051 (Version 2)
Quarter: 2025Q3

REPORT INFORMATION
  Report Type: Spontaneous
  Country: US (occurrence: US)
  Receive Date: 20250730
  Receipt Date: 20250731
  Transmission Date: 20251021
  Serious: Yes (Death, Hospitalization, Other)
  Sender: INCYTE
  Company Number: US-INCYTE CORPORATION-2025IN008263

PATIENT
  Age: 81 Year

DRUGS (3)
  1. JAKAFI [Suspect]
     Active Substance: RUXOLITINIB
     Indication: Myelofibrosis
     Dosage: 20 MILLIGRAM, BID
  2. JAKAFI [Suspect]
     Active Substance: RUXOLITINIB
     Dosage: 10 MILLIGRAM, BID
     Route: 065
  3. PELABRESIB [Suspect]
     Active Substance: PELABRESIB
     Indication: Myelofibrosis

REACTIONS (14)
  - Pneumonitis [Fatal]
  - Pneumonia [Fatal]
  - Immunosuppression [Unknown]
  - Red blood cell count abnormal [Unknown]
  - Respiratory disorder [Unknown]
  - Cough [Unknown]
  - Nasal congestion [Unknown]
  - Dyspnoea [Unknown]
  - Cytomegalovirus test positive [Unknown]
  - Herpes simplex test positive [Unknown]
  - Respirovirus test positive [Unknown]
  - Neutrophil count abnormal [Unknown]
  - Lymphocyte count abnormal [Unknown]
  - Nosocomial infection [Unknown]
